FAERS Safety Report 19939148 (Version 2)
Quarter: 2021Q4

REPORT INFORMATION
  Report Type: Spontaneous
  Country: US (occurrence: US)
  Receive Date: 20211011
  Receipt Date: 20211207
  Transmission Date: 20220303
  Serious: No
  Sender: FDA-Public Use
  Company Number: US-KARYOPHARM-2021KPT001242

PATIENT

DRUGS (20)
  1. XPOVIO [Suspect]
     Active Substance: SELINEXOR
     Indication: Plasma cell myeloma
     Dosage: 60 MG, WEEKLY
     Route: 048
     Dates: start: 20210907
  2. XPOVIO [Suspect]
     Active Substance: SELINEXOR
     Dosage: 40 MG, WEEKLY
     Route: 048
     Dates: start: 20210922, end: 20211110
  3. ACYCLOVIR [Concomitant]
     Active Substance: ACYCLOVIR
  4. BUPROPION [Concomitant]
     Active Substance: BUPROPION
  5. DEPAKOTE [Concomitant]
     Active Substance: DIVALPROEX SODIUM
  6. DEXAMETHASONE [Concomitant]
     Active Substance: DEXAMETHASONE
  7. DIVALPROEX SODIUM [Concomitant]
     Active Substance: DIVALPROEX SODIUM
  8. GABAPENTIN [Concomitant]
     Active Substance: GABAPENTIN
  9. LEVOTHYROXINE [Concomitant]
     Active Substance: LEVOTHYROXINE
  10. LORAZEPAM [Concomitant]
     Active Substance: LORAZEPAM
  11. METOPROLOL SUCCINATE [Concomitant]
     Active Substance: METOPROLOL SUCCINATE
  12. MIRTAZAPINE [Concomitant]
     Active Substance: MIRTAZAPINE
  13. OXYCODONE HYDROCHLORIDE [Concomitant]
     Active Substance: OXYCODONE HYDROCHLORIDE
  14. PANTOPRAZOLE [Concomitant]
     Active Substance: PANTOPRAZOLE
  15. PROAIR HFA [Concomitant]
     Active Substance: ALBUTEROL SULFATE
  16. PROCHLORPERAZINE [Concomitant]
     Active Substance: PROCHLORPERAZINE
  17. SERTRALINE [Concomitant]
     Active Substance: SERTRALINE HYDROCHLORIDE
  18. XGEVA [Concomitant]
     Active Substance: DENOSUMAB
  19. ZOFRAN [Concomitant]
     Active Substance: ONDANSETRON HYDROCHLORIDE
  20. ZOLPIDEM TARTRATE [Concomitant]
     Active Substance: ZOLPIDEM TARTRATE

REACTIONS (3)
  - Visual impairment [Unknown]
  - Nausea [Unknown]
  - Platelet count decreased [Unknown]

NARRATIVE: CASE EVENT DATE: 20210901
